FAERS Safety Report 21657641 (Version 1)
Quarter: 2022Q4

REPORT INFORMATION
  Report Type: Spontaneous
  Country: JP (occurrence: JP)
  Receive Date: 20221129
  Receipt Date: 20221129
  Transmission Date: 20230113
  Serious: Yes (Other)
  Sender: FDA-Public Use
  Company Number: JP-PFIZER INC-PV202200111970

PATIENT
  Age: 73 Year
  Sex: Male
  Weight: 43.7 kg

DRUGS (10)
  1. PACLITAXEL [Suspect]
     Active Substance: PACLITAXEL
     Indication: Gastric cancer
     Dosage: 100 MG, WEEKLY
     Route: 041
     Dates: start: 20220414, end: 20220421
  2. PACLITAXEL [Suspect]
     Active Substance: PACLITAXEL
     Dosage: 90 MG EVERY OTHER WEEK. THE FIRST COURSE
     Route: 041
     Dates: start: 20220516, end: 20220601
  3. PACLITAXEL [Suspect]
     Active Substance: PACLITAXEL
     Dosage: 90 MG
     Route: 041
  4. PACLITAXEL [Suspect]
     Active Substance: PACLITAXEL
     Dosage: 90 MG EVERY OTHER WEEK, THE FIFTH COURSE
     Route: 041
     Dates: start: 20220905, end: 20220921
  5. PACLITAXEL [Suspect]
     Active Substance: PACLITAXEL
     Dosage: 90 MG EVERY OTHER WEEK, THE SIXTH COURSE
     Route: 041
     Dates: start: 20221017, end: 20221017
  6. VONOPRAZAN FUMARATE [Concomitant]
     Active Substance: VONOPRAZAN FUMARATE
  7. ELIQUIS [Concomitant]
     Active Substance: APIXABAN
  8. URSODIOL [Concomitant]
     Active Substance: URSODIOL
  9. NAUZELIN [Concomitant]
     Active Substance: DOMPERIDONE
  10. SODIUM FERROUS CITRATE [Concomitant]
     Active Substance: SODIUM FERROUS CITRATE

REACTIONS (2)
  - Hepatic function abnormal [Recovering/Resolving]
  - C-reactive protein increased [Unknown]

NARRATIVE: CASE EVENT DATE: 20221003
